FAERS Safety Report 12809295 (Version 2)
Quarter: 2019Q1

REPORT INFORMATION
  Report Type: Spontaneous
  Country: FR (occurrence: FR)
  Receive Date: 20161004
  Receipt Date: 20190213
  Transmission Date: 20190417
  Serious: Yes (Hospitalization, Other)
  Sender: FDA-Public Use
  Company Number: FR-BAXTER-2016BAX049289

PATIENT
  Age: 53 Year
  Sex: Female
  Weight: 50 kg

DRUGS (31)
  1. UROMITEXAN 5 G/50 ML, SOLUTION INJECTABLE POUR PERFUSION EN FLACON [Suspect]
     Active Substance: MESNA
     Indication: OFF LABEL USE
     Dosage: THEN 3,000 MG VIA ORAL ROUTE
     Route: 042
     Dates: start: 20160816, end: 20160816
  2. EMEND [Suspect]
     Active Substance: APREPITANT
     Indication: PROPHYLAXIS OF NAUSEA AND VOMITING
     Dosage: DAY 1
     Route: 048
     Dates: start: 20160719, end: 20160719
  3. EMEND [Suspect]
     Active Substance: APREPITANT
     Route: 048
     Dates: start: 20160816, end: 20160816
  4. CORTANCYL [Suspect]
     Active Substance: PREDNISONE
     Dosage: 60 MG (60 MG ONCE A DAY)
     Route: 048
     Dates: start: 20160817, end: 20160817
  5. XANAX [Concomitant]
     Active Substance: ALPRAZOLAM
     Indication: PRODUCT USED FOR UNKNOWN INDICATION
     Dosage: (ONCE DAILY IN THE MORNING); LONG TERM
     Route: 065
  6. ENDOXAN 1000 MG, POUDRE POUR SOLUTIONINJECTABLE [Suspect]
     Active Substance: CYCLOPHOSPHAMIDE
     Route: 042
     Dates: start: 20160816, end: 20160816
  7. ONDANSETRON ARROW [Suspect]
     Active Substance: ONDANSETRON
     Dosage: AT DAY 1, 2 AND 3
     Route: 048
     Dates: start: 20160816, end: 20160817
  8. ETOPOSIDE MYLAN [Suspect]
     Active Substance: ETOPOSIDE
     Dosage: DOSAGE FORM: SOLUTION TO DILUTE FOR INFUSION, (UNIT DOSE: 20 MG/ML) AT DAY 1, 2 AND 3 EVERY 20 DAYS
     Route: 042
     Dates: start: 20160816, end: 20160817
  9. NATULAN [Suspect]
     Active Substance: PROCARBAZINE HYDROCHLORIDE
     Route: 048
     Dates: start: 20160816, end: 20160822
  10. BACTRIM [Concomitant]
     Active Substance: SULFAMETHOXAZOLE\TRIMETHOPRIM
     Indication: ANTIBIOTIC PROPHYLAXIS
     Dosage: DOSAGE FORM: TABLET, THRICE WEEKLY (MONDAY, TUESDAY, FRIDAY)
     Route: 065
     Dates: start: 20160817
  11. INEXIUM [Concomitant]
     Active Substance: ESOMEPRAZOLE
     Indication: PRODUCT USED FOR UNKNOWN INDICATION
     Dosage: (ONCE DAILY IN THE MORNING); LONG-TERM
     Route: 065
  12. UROMITEXAN 600 MG, COMPRIM? PELLICUL? S?CABLE [Suspect]
     Active Substance: MESNA
     Indication: PROPHYLAXIS URINARY TRACT INFECTION
     Route: 048
     Dates: start: 20160719, end: 20160719
  13. ENDOXAN 1000 MG, POUDRE POUR SOLUTIONINJECTABLE [Suspect]
     Active Substance: CYCLOPHOSPHAMIDE
     Indication: HODGKIN^S DISEASE STAGE IV
     Route: 042
     Dates: start: 20160719, end: 20160719
  14. EMEND [Suspect]
     Active Substance: APREPITANT
     Dosage: AT DAY 1, 2 AND 3 OF CYCLE EVERY 28 DAYS
     Route: 048
     Dates: start: 20160816, end: 20160817
  15. EMEND [Suspect]
     Active Substance: APREPITANT
     Indication: PROPHYLAXIS OF NAUSEA AND VOMITING
     Dosage: DAY 2
     Route: 048
     Dates: start: 20160720, end: 20160720
  16. EFFEXOR [Concomitant]
     Active Substance: VENLAFAXINE HYDROCHLORIDE
     Indication: PRODUCT USED FOR UNKNOWN INDICATION
     Dosage: 1 DF IN THE MORNING AND A HALF DF AT MIDDAY, EVERY DAY;LONG-TERM
     Route: 065
  17. DIFFU K [Concomitant]
     Active Substance: POTASSIUM CHLORIDE
     Indication: PRODUCT USED FOR UNKNOWN INDICATION
     Dosage: ONCE IN THE EVENING; LONG TERM
     Route: 065
  18. NATULAN [Suspect]
     Active Substance: PROCARBAZINE HYDROCHLORIDE
     Indication: HODGKIN^S DISEASE STAGE IV
     Route: 048
     Dates: start: 20160719, end: 20160725
  19. CORTANCYL [Suspect]
     Active Substance: PREDNISONE
     Indication: HODGKIN^S DISEASE STAGE IV
     Route: 048
     Dates: start: 20160720, end: 20160725
  20. METHYLPREDNISOLONE MYLAN [Suspect]
     Active Substance: METHYLPREDNISOLONE
     Indication: HODGKIN^S DISEASE STAGE IV
     Route: 042
     Dates: start: 20160719, end: 20160719
  21. UROMITEXAN 600 MG, COMPRIM? PELLICUL? S?CABLE [Suspect]
     Active Substance: MESNA
     Indication: OFF LABEL USE
     Route: 048
     Dates: start: 20160816, end: 20160816
  22. EMEND [Suspect]
     Active Substance: APREPITANT
     Route: 048
     Dates: start: 20160817, end: 20160817
  23. DOXORUBICIN TEVA [Suspect]
     Active Substance: DOXORUBICIN
     Dosage: AT DAY 1, 2 AND 3 EVERY 28 DAYS (52 MG)
     Route: 042
     Dates: start: 20160816, end: 20160816
  24. METHYLPREDNISOLONE MYLAN [Suspect]
     Active Substance: METHYLPREDNISOLONE
     Dosage: ON D1 OF CYCLES
     Route: 042
     Dates: start: 20160816, end: 20160816
  25. ZELITREX [Concomitant]
     Active Substance: VALACYCLOVIR HYDROCHLORIDE
     Indication: ANTIVIRAL PROPHYLAXIS
     Route: 048
     Dates: start: 20160816
  26. UROMITEXAN 5 G/50 ML, SOLUTION INJECTABLE POUR PERFUSION EN FLACON [Suspect]
     Active Substance: MESNA
     Indication: PROPHYLAXIS URINARY TRACT INFECTION
     Route: 042
     Dates: start: 20160719, end: 20160719
  27. EMEND [Suspect]
     Active Substance: APREPITANT
     Route: 048
     Dates: start: 20160721, end: 20160721
  28. ONDANSETRON ARROW [Suspect]
     Active Substance: ONDANSETRON
     Indication: PROPHYLAXIS OF NAUSEA AND VOMITING
     Route: 048
     Dates: start: 20160719, end: 20160721
  29. ETOPOSIDE MYLAN [Suspect]
     Active Substance: ETOPOSIDE
     Indication: HODGKIN^S DISEASE STAGE IV
     Dosage: SOLUTION FOR DILUTION FOR INFUSION
     Route: 065
     Dates: start: 20160719, end: 20160721
  30. DOXORUBICIN TEVA [Suspect]
     Active Substance: DOXORUBICIN
     Indication: HODGKIN^S DISEASE STAGE IV
     Route: 065
     Dates: start: 20160719, end: 20160719
  31. OFLOXACIN MYLAN [Concomitant]
     Active Substance: OFLOXACIN
     Indication: ANTIBIOTIC PROPHYLAXIS
     Dosage: DOSAGE FORM: SCORED FILM-COATED TABLET
     Route: 048
     Dates: start: 20160810

REACTIONS (7)
  - Erythema [Unknown]
  - Febrile bone marrow aplasia [Unknown]
  - Tachycardia [Unknown]
  - Escherichia bacteraemia [Unknown]
  - Hypotension [Unknown]
  - Device related thrombosis [Unknown]
  - Rash maculo-papular [Recovered/Resolved]

NARRATIVE: CASE EVENT DATE: 201607
